FAERS Safety Report 10404122 (Version 2)
Quarter: 2015Q4

REPORT INFORMATION
  Report Type: Spontaneous
  Country: US (occurrence: None)
  Receive Date: 20130815
  Receipt Date: 20151110
  Transmission Date: 20160304
  Serious: Yes (Other)
  Sender: FDA-Public Use
  Company Number: ADR-2013-00333

PATIENT
  Sex: Female

DRUGS (1)
  1. BACLOFEN UNKNOWN (BACLOFEN INTRATHECAL) 500 MCG/ML [Suspect]
     Active Substance: BACLOFEN
     Indication: MUSCLE SPASTICITY
     Dosage: 73.94 MCG/DAY

REACTIONS (7)
  - Fatigue [None]
  - Post lumbar puncture syndrome [None]
  - Unevaluable event [None]
  - Therapeutic response increased [None]
  - Nausea [None]
  - Drug withdrawal syndrome [None]
  - Muscle tightness [None]
